FAERS Safety Report 6615160-1 (Version None)
Quarter: 2010Q1

REPORT INFORMATION
  Report Type: 
  Country: None (occurrence: None)
  Receive Date: 20100305
  Receipt Date: 20100303
  Transmission Date: 20100710
  Serious: Yes (Life-Threatening, Hospitalization, Disabling)
  Sender: FDA-Public Use
  Company Number: JP-B.I. PHARMACEUTICALS,INC./RIDGEFIELD-2009-BP-02567NB

PATIENT
  Sex: Male
  Weight: 71 kg

DRUGS (2)
  1. MICARDIS [Suspect]
     Indication: HYPERTENSION
     Dosage: 80 MG
     Route: 048
     Dates: start: 20061225, end: 20080723
  2. LASIX [Concomitant]
     Indication: PROPHYLAXIS
     Dosage: 100 MG
     Route: 048

REACTIONS (3)
  - CARDIAC FAILURE [None]
  - DIALYSIS [None]
  - DRUG INEFFECTIVE [None]
